FAERS Safety Report 5873803-4 (Version None)
Quarter: 2008Q3

REPORT INFORMATION
  Report Type: 
  Country: None (occurrence: None)
  Receive Date: 20080903
  Receipt Date: 20080819
  Transmission Date: 20090109
  Serious: Yes (Other)
  Sender: FDA-Public Use
  Company Number: 2008S11015477

PATIENT
  Age: 31 Year
  Sex: Female

DRUGS (6)
  1. MIRTAZAPINE [Suspect]
     Indication: DEPRESSION
     Dosage: 30 MG, ORAL
     Route: 048
     Dates: start: 20071201, end: 20080717
  2. COCAINE [Concomitant]
  3. DIAZEPAM [Concomitant]
  4. HEROIN [Concomitant]
  5. METHADONE HCL [Concomitant]
  6. QUETIAPINE [Concomitant]

REACTIONS (2)
  - NEUTROPENIA [None]
  - OROPHARYNGEAL PAIN [None]
